FAERS Safety Report 11170349 (Version 1)
Quarter: 2015Q2

REPORT INFORMATION
  Report Type: Spontaneous
  Country: US (occurrence: US)
  Receive Date: 20150608
  Receipt Date: 20150608
  Transmission Date: 20150821
  Serious: No
  Sender: FDA-Public Use
  Company Number: US-DRREDDYS-USA/USA/14/0039829

PATIENT
  Age: 67 Year
  Sex: Female
  Weight: 63.5 kg

DRUGS (3)
  1. MUCINEX ALLERGY [Suspect]
     Active Substance: FEXOFENADINE HYDROCHLORIDE
     Indication: SEASONAL ALLERGY
     Route: 048
     Dates: start: 20140417
  2. MUCINEX LIQUID [Concomitant]
     Indication: OROPHARYNGEAL PAIN
     Dosage: HALF DOSAGE A COUPLE TIMES DAILY
     Route: 065
     Dates: start: 20140413
  3. MUCINEX LIQUID [Concomitant]
     Indication: HEADACHE

REACTIONS (3)
  - Somnolence [Recovering/Resolving]
  - Head discomfort [Not Recovered/Not Resolved]
  - Lethargy [Recovering/Resolving]

NARRATIVE: CASE EVENT DATE: 20140418
